FAERS Safety Report 4522306-8 (Version None)
Quarter: 2004Q4

REPORT INFORMATION
  Report Type: 
  Country: None (occurrence: None)
  Receive Date: 20041207
  Receipt Date: 20041125
  Transmission Date: 20050328
  Serious: Yes (Hospitalization)
  Sender: FDA-Public Use
  Company Number: 210717

PATIENT
  Age: 31 Year
  Sex: Male

DRUGS (5)
  1. MABTHERA (RITUXIMAB) CONC FOR SOLUTION FOR INFUSION [Suspect]
     Indication: NON-HODGKIN'S LYMPHOMA
     Dosage: 600 MG, INTRAVENOUS
     Route: 042
     Dates: start: 20040803, end: 20040818
  2. DEXAMETHASONE [Concomitant]
  3. IFOSFAMIDE [Concomitant]
  4. CISPLATIN [Concomitant]
  5. ETOPOSIDE [Concomitant]

REACTIONS (1)
  - NEUTROPENIA [None]
